FAERS Safety Report 8136997-6 (Version None)
Quarter: 2012Q1

REPORT INFORMATION
  Report Type: 
  Country: None (occurrence: None)
  Receive Date: 20120215
  Receipt Date: 20120202
  Transmission Date: 20120608
  Serious: Yes (Hospitalization)
  Sender: FDA-Public Use
  Company Number: US-UCBSA-051018

PATIENT
  Age: 43 Year
  Sex: Female
  Weight: 104.35 kg

DRUGS (4)
  1. CIMZIA [Suspect]
     Indication: RHEUMATOID ARTHRITIS
     Dosage: 2 SHOTS ONCE IN EVERY 2 WEEKS.LAST DOSE ON 05/JAN/2012.
     Route: 058
     Dates: start: 20111201
  2. PREDNISONE TAB [Concomitant]
     Indication: PAIN
     Dosage: NORMALLY 30 MG BUT MAY TAKE 60 MG IF NEEDED
     Route: 048
     Dates: start: 20110101
  3. NON STEROIDAL [Concomitant]
     Indication: RHEUMATOID ARTHRITIS
     Dosage: 1 TAB DAILY
     Route: 048
     Dates: start: 20111201
  4. PREDNISONE TAB [Concomitant]
     Indication: INFLAMMATION
     Dosage: NORMALLY 30 MG BUT MAY TAKE 60 MG IF NEEDED
     Route: 048
     Dates: start: 20110101

REACTIONS (8)
  - ANAEMIA [None]
  - IMMUNE SYSTEM DISORDER [None]
  - CHEST PAIN [None]
  - KIDNEY INFECTION [None]
  - BACK PAIN [None]
  - JUVENILE ARTHRITIS [None]
  - CYSTITIS [None]
  - BLOOD POTASSIUM DECREASED [None]
